FAERS Safety Report 9784720 (Version 2)
Quarter: 2014Q1

REPORT INFORMATION
  Report Type: Report from Study
  Country: IT (occurrence: IT)
  Receive Date: 20131227
  Receipt Date: 20140318
  Transmission Date: 20141002
  Serious: Yes (Hospitalization)
  Sender: FDA-Public Use
  Company Number: IT-ROCHE-1325576

PATIENT
  Sex: Female
  Weight: 82 kg

DRUGS (8)
  1. ATENOLOL [Concomitant]
  2. ISOSORBIDE MONONITRATE [Concomitant]
  3. AMLODIPINE [Concomitant]
  4. LISINOPRIL [Concomitant]
  5. FUROSEMIDE [Concomitant]
  6. NITROGLYCERINE [Concomitant]
  7. RANIBIZUMAB [Suspect]
     Indication: RETINAL VEIN OCCLUSION
     Route: 050
     Dates: start: 20121127, end: 20121127
  8. RANIBIZUMAB [Suspect]
     Indication: MACULAR OEDEMA
     Dosage: MOST RECENT DOSE PRIOR TO SAE 26/NOV/2013
     Route: 050
     Dates: start: 20131126

REACTIONS (1)
  - Cardiac failure [Recovered/Resolved]
